FAERS Safety Report 24991050 (Version 2)
Quarter: 2025Q2

REPORT INFORMATION
  Report Type: Report from Study
  Country: CL (occurrence: CL)
  Receive Date: 20250220
  Receipt Date: 20250528
  Transmission Date: 20250716
  Serious: Yes (Hospitalization, Other)
  Sender: JOHNSON AND JOHNSON
  Company Number: CL-JNJFOC-20241290004

PATIENT
  Age: 40 Year
  Sex: Female

DRUGS (1)
  1. SIMPONI [Suspect]
     Active Substance: GOLIMUMAB
     Indication: Rheumatoid arthritis
     Route: 058
     Dates: start: 20240130

REACTIONS (5)
  - Foot deformity [Unknown]
  - Trigger toe [Unknown]
  - Back pain [Unknown]
  - Postoperative wound infection [Recovered/Resolved]
  - Impaired healing [Not Recovered/Not Resolved]
